FAERS Safety Report 19834159 (Version 1)
Quarter: 2021Q3

REPORT INFORMATION
  Report Type: Spontaneous
  Country: JP (occurrence: JP)
  Receive Date: 20210915
  Receipt Date: 20210915
  Transmission Date: 20211014
  Serious: Yes (Hospitalization)
  Sender: FDA-Public Use
  Company Number: JP-UNICHEM PHARMACEUTICALS (USA) INC-UCM202109-000794

PATIENT
  Age: 31 Year
  Sex: Female

DRUGS (15)
  1. DIVALPROEX SODIUM. [Suspect]
     Active Substance: DIVALPROEX SODIUM
     Indication: OVERDOSE
     Dosage: 7200 MG
  2. LORAZEPAM. [Suspect]
     Active Substance: LORAZEPAM
     Indication: BIPOLAR DISORDER
  3. DIVALPROEX SODIUM. [Suspect]
     Active Substance: DIVALPROEX SODIUM
     Indication: BIPOLAR DISORDER
  4. BROTIZOLAM [Suspect]
     Active Substance: BROTIZOLAM
     Indication: BIPOLAR DISORDER
  5. QUETIAPINE. [Suspect]
     Active Substance: QUETIAPINE
     Indication: BIPOLAR DISORDER
  6. LITHIUM. [Suspect]
     Active Substance: LITHIUM
     Indication: OVERDOSE
     Dosage: 7200 MG
  7. LITHIUM. [Suspect]
     Active Substance: LITHIUM
     Indication: BIPOLAR DISORDER
  8. BROTIZOLAM [Suspect]
     Active Substance: BROTIZOLAM
     Indication: OVERDOSE
     Dosage: 3 MG
  9. ZOPICLONE [Suspect]
     Active Substance: ZOPICLONE
     Indication: OVERDOSE
     Dosage: 90 MG
  10. RISPERIDONE. [Suspect]
     Active Substance: RISPERIDONE
     Indication: BIPOLAR DISORDER
  11. QUETIAPINE. [Suspect]
     Active Substance: QUETIAPINE
     Indication: OVERDOSE
     Dosage: 600 MG
  12. BIPERIDEN [Concomitant]
     Active Substance: BIPERIDEN
     Indication: BIPOLAR DISORDER
  13. LORAZEPAM. [Suspect]
     Active Substance: LORAZEPAM
     Indication: OVERDOSE
     Dosage: 18 MG
  14. ZOPICLONE [Suspect]
     Active Substance: ZOPICLONE
     Indication: BIPOLAR DISORDER
  15. RISPERIDONE. [Suspect]
     Active Substance: RISPERIDONE
     Indication: OVERDOSE
     Dosage: 12 MG

REACTIONS (3)
  - Coma scale abnormal [Recovering/Resolving]
  - Overdose [Unknown]
  - Neuroleptic malignant syndrome [Recovering/Resolving]
